FAERS Safety Report 8492742-6 (Version None)
Quarter: 2012Q3

REPORT INFORMATION
  Report Type: 
  Country: None (occurrence: None)
  Receive Date: 20120706
  Receipt Date: 20120626
  Transmission Date: 20120928
  Serious: Yes (Hospitalization)
  Sender: FDA-Public Use
  Company Number: BE-ABBOTT-12P-013-0950076-00

PATIENT
  Sex: Female

DRUGS (5)
  1. MIRENA [Concomitant]
     Indication: PRODUCT USED FOR UNKNOWN INDICATION
  2. EFFORTIL [Concomitant]
     Indication: PRODUCT USED FOR UNKNOWN INDICATION
  3. FOLAVIT [Concomitant]
     Indication: PRODUCT USED FOR UNKNOWN INDICATION
  4. HUMIRA [Suspect]
     Indication: RHEUMATOID ARTHRITIS
     Dates: start: 20101210
  5. METHOTREXATE [Concomitant]
     Indication: PRODUCT USED FOR UNKNOWN INDICATION

REACTIONS (3)
  - HYPOTHYROIDISM [None]
  - BASEDOW'S DISEASE [None]
  - TOXIC NODULAR GOITRE [None]
